FAERS Safety Report 19656876 (Version 1)
Quarter: 2021Q3

REPORT INFORMATION
  Report Type: Spontaneous
  Country: US (occurrence: US)
  Receive Date: 20210804
  Receipt Date: 20210804
  Transmission Date: 20211014
  Serious: Yes (Other)
  Sender: FDA-Public Use
  Company Number: None

PATIENT
  Sex: Female

DRUGS (8)
  1. PAROXETINE. [Concomitant]
     Active Substance: PAROXETINE
     Dates: start: 20210624
  2. MOVANTIK [Concomitant]
     Active Substance: NALOXEGOL OXALATE
     Dates: start: 20210624
  3. PANTOPRAZOLE [Concomitant]
     Active Substance: PANTOPRAZOLE
     Dates: start: 20210624
  4. ENOXAPARIN [Concomitant]
     Active Substance: ENOXAPARIN
     Dates: start: 20210624
  5. MORPHINE [Concomitant]
     Active Substance: MORPHINE
     Dates: start: 20210624
  6. ZOFRAN [Concomitant]
     Active Substance: ONDANSETRON HYDROCHLORIDE
     Dates: start: 20210624
  7. OPDIVO [Concomitant]
     Active Substance: NIVOLUMAB
     Dates: start: 20210624
  8. CABOMETYX [Suspect]
     Active Substance: CABOZANTINIB S-MALATE
     Indication: RENAL CANCER
     Route: 048
     Dates: start: 20210624

REACTIONS (1)
  - Drug ineffective [None]
